FAERS Safety Report 6164518-6 (Version None)
Quarter: 2009Q2

REPORT INFORMATION
  Report Type: 
  Country: None (occurrence: None)
  Receive Date: 20090421
  Receipt Date: 20090409
  Transmission Date: 20091009
  Serious: Yes (Disabling, Other)
  Sender: FDA-Public Use
  Company Number: ADE2009-0559

PATIENT
  Age: 78 Year
  Sex: Male

DRUGS (4)
  1. SIMVASTATIN [Suspect]
     Indication: BRONCHOPULMONARY ASPERGILLOSIS
     Dosage: 40MG - DAILY - ORAL
     Route: 048
     Dates: start: 20051101
  2. ITRACONAZOLE [Suspect]
     Dates: start: 20051201
  3. WARFARIN [Concomitant]
  4. ZOLADEX [Concomitant]

REACTIONS (6)
  - ASPERGILLOMA [None]
  - GAIT DISTURBANCE [None]
  - MUSCLE ENZYME DECREASED [None]
  - MYALGIA [None]
  - MYOPATHY [None]
  - POLYNEUROPATHY [None]
